FAERS Safety Report 25288332 (Version 1)
Quarter: 2025Q2

REPORT INFORMATION
  Report Type: Spontaneous
  Country: US (occurrence: None)
  Receive Date: 20250509
  Receipt Date: 20250509
  Transmission Date: 20250716
  Serious: Yes (Other)
  Sender: FDA-CTU
  Company Number: None

PATIENT
  Age: 86 Year
  Sex: Female
  Weight: 50.85 kg

DRUGS (17)
  1. REVLIMID [Suspect]
     Active Substance: LENALIDOMIDE
     Indication: Monoclonal gammopathy
     Dosage: FREQUENCY : DAILY;?
     Route: 048
     Dates: start: 20250306, end: 20250506
  2. ACYCLOVIR 400 MG TAB [Concomitant]
  3. ALPRAZOLAM [Concomitant]
     Active Substance: ALPRAZOLAM
  4. Ambien 5 mg tablet [Concomitant]
  5. AMLODIPINE [Concomitant]
     Active Substance: AMLODIPINE BESYLATE
  6. aspirin 81 mg capsule [Concomitant]
  7. coenzyme Q10 (ubiquinol) 100 mg capsule [Concomitant]
  8. DEXAMETHASONE [Concomitant]
     Active Substance: DEXAMETHASONE
  9. ICaps AREDS2 250 mg-200 unit-12.5 mg-1 mg capsule [Concomitant]
  10. irbesartan 300 mg tablet [Concomitant]
  11. magnesium 400 mg (as magnesium oxide) tablet [Concomitant]
  12. metoprolol succinate ER 50 mg tablet,extended release 24 hr [Concomitant]
  13. Prolia 60 mg/mL subcutaneous syringe [Concomitant]
  14. rosuvastatin 10 mg table [Concomitant]
  15. Synthroid 88 mcg tablet [Concomitant]
  16. TELMISARTAN [Concomitant]
     Active Substance: TELMISARTAN
  17. Voquezna 10 mg tablet [Concomitant]

REACTIONS (1)
  - Rash [None]

NARRATIVE: CASE EVENT DATE: 20250506
